FAERS Safety Report 17345448 (Version 3)
Quarter: 2020Q3

REPORT INFORMATION
  Report Type: Spontaneous
  Country: PT (occurrence: PT)
  Receive Date: 20200129
  Receipt Date: 20200715
  Transmission Date: 20201102
  Serious: Yes (Death, Life-Threatening, Hospitalization, Disabling, Other)
  Sender: FDA-Public Use
  Company Number: PT-MYLANLABS-2020M1010802

PATIENT
  Age: 70 Year
  Sex: Male

DRUGS (4)
  1. ALLOPURINOL. [Suspect]
     Active Substance: ALLOPURINOL
     Indication: PRODUCT USED FOR UNKNOWN INDICATION
     Dosage: UNK
     Route: 048
  2. CEFTRIAXONE. [Concomitant]
     Active Substance: CEFTRIAXONE
     Indication: SEPTIC SHOCK
     Dosage: UNK
     Route: 065
  3. LINEZOLID. [Concomitant]
     Active Substance: LINEZOLID
     Indication: ENDOCARDITIS
     Dosage: UNK
     Route: 065
  4. GENTAMICIN. [Concomitant]
     Active Substance: GENTAMICIN
     Indication: ENDOCARDITIS
     Dosage: UNK
     Route: 065

REACTIONS (3)
  - Stevens-Johnson syndrome [Fatal]
  - Enterococcal infection [Fatal]
  - Sepsis [Fatal]
